FAERS Safety Report 5919139-4 (Version None)
Quarter: 2008Q4

REPORT INFORMATION
  Report Type: 
  Country: None (occurrence: None)
  Receive Date: 20081015
  Receipt Date: 20081014
  Transmission Date: 20090506
  Serious: Yes (Hospitalization, Other)
  Sender: FDA-Public Use
  Company Number: DE-BRISTOL-MYERS SQUIBB COMPANY-14369615

PATIENT
  Age: 46 Year
  Sex: Female
  Weight: 72 kg

DRUGS (5)
  1. CYCLOPHOSPHAMIDE [Suspect]
     Indication: BREAST CANCER
     Route: 042
     Dates: start: 20081010, end: 20081010
  2. PACLITAXEL [Suspect]
     Indication: BREAST CANCER
     Dosage: INITIALLY TAKEN ON 29AUG2008
     Route: 042
     Dates: start: 20080829, end: 20080926
  3. EPIRUBICIN [Suspect]
     Indication: BREAST CANCER
     Dosage: INITIALLY TAKEN ON 18JUL2008
     Route: 042
     Dates: start: 20080718, end: 20080815
  4. NEXIUM [Concomitant]
     Route: 048
     Dates: start: 20080701
  5. FRAXIPARINE [Concomitant]
     Route: 058
     Dates: start: 20080807

REACTIONS (1)
  - ENCEPHALOPATHY [None]
